FAERS Safety Report 18456959 (Version 3)
Quarter: 2020Q4

REPORT INFORMATION
  Report Type: Spontaneous
  Country: FR (occurrence: FR)
  Receive Date: 20201103
  Receipt Date: 20201201
  Transmission Date: 20210114
  Serious: Yes (Other)
  Sender: FDA-Public Use
  Company Number: FR-GLAXOSMITHKLINE-FR2020215588

PATIENT
  Sex: Female

DRUGS (1)
  1. VENTOLINE [Suspect]
     Active Substance: ALBUTEROL
     Indication: PRODUCT USED FOR UNKNOWN INDICATION
     Dosage: UNK, 100MCG

REACTIONS (4)
  - Product complaint [Unknown]
  - Extra dose administered [Unknown]
  - Product dose omission issue [Unknown]
  - Cardiac failure [Unknown]
